FAERS Safety Report 4894693-2 (Version None)
Quarter: 2006Q1

REPORT INFORMATION
  Report Type: 
  Country: None (occurrence: None)
  Receive Date: 20060130
  Receipt Date: 20040611
  Transmission Date: 20060701
  Serious: Yes (Disabling)
  Sender: FDA-Public Use
  Company Number: FR-SP-E2004-01888

PATIENT
  Age: 39 Year
  Sex: Male

DRUGS (1)
  1. TUBERTEST [Suspect]
     Indication: TUBERCULIN TEST
     Route: 023
     Dates: start: 20040201

REACTIONS (4)
  - INJECTION SITE ERYTHEMA [None]
  - INJECTION SITE NECROSIS [None]
  - INJECTION SITE OEDEMA [None]
  - INJECTION SITE ULCER [None]
